FAERS Safety Report 9264922 (Version 1)
Quarter: 2013Q2

REPORT INFORMATION
  Report Type: Spontaneous
  Country: US (occurrence: US)
  Receive Date: 20130501
  Receipt Date: 20130501
  Transmission Date: 20140414
  Serious: Yes (Other)
  Sender: FDA-Public Use
  Company Number: US-BAYER-2013-052089

PATIENT
  Age: 21 Year
  Sex: Female
  Weight: 113 kg

DRUGS (9)
  1. YASMIN [Suspect]
     Indication: MENSTRUATION IRREGULAR
     Dosage: UNK
     Dates: start: 2005, end: 200811
  2. YASMIN [Suspect]
     Indication: POLYCYSTIC OVARIES
     Dosage: UNK
     Dates: start: 2006
  3. YAZ [Suspect]
  4. TOPAMAX [Concomitant]
     Dosage: 100 MG, QD
     Dates: start: 20080926
  5. IBUPROFEN [Concomitant]
     Dosage: UNK
     Dates: start: 20080926
  6. PERCOCET [Concomitant]
     Dosage: UNK
     Dates: start: 20080926
  7. BENADRYL [Concomitant]
     Dosage: UNK
     Dates: start: 20080926
  8. PROPANOLOL [Concomitant]
     Indication: PANIC ATTACK
     Dosage: 20 MG BID (INTERPRETED AS NEEDED) PRN
     Dates: start: 20081021
  9. DARVOCET [Concomitant]
     Dosage: UNK UNK, TID
     Dates: start: 20081119

REACTIONS (2)
  - Deep vein thrombosis [Recovered/Resolved]
  - Off label use [None]
